FAERS Safety Report 5902008-3 (Version None)
Quarter: 2008Q3

REPORT INFORMATION
  Report Type: 
  Country: None (occurrence: None)
  Receive Date: 20080909
  Receipt Date: 20080515
  Transmission Date: 20090109
  Serious: Yes (Other)
  Sender: FDA-Public Use
  Company Number: US-WYE-H04146408

PATIENT
  Age: 65 Year
  Sex: Male
  Weight: 108.96 kg

DRUGS (4)
  1. ADVIL [Suspect]
     Indication: ANALGESIA
     Dosage: 1 CAPSULE 1X PER 1 DAY, ORAL
     Route: 048
  2. MESTINON [Concomitant]
  3. FOLIC ACID [Concomitant]
  4. ASPIRIN [Concomitant]

REACTIONS (1)
  - HYPERHIDROSIS [None]
